FAERS Safety Report 21816985 (Version 1)
Quarter: 2023Q1

REPORT INFORMATION
  Report Type: Spontaneous
  Country: US (occurrence: None)
  Receive Date: 20230103
  Receipt Date: 20230103
  Transmission Date: 20230418
  Serious: Yes (Hospitalization)
  Sender: FDA-Public Use
  Company Number: None

PATIENT
  Age: 9 Year
  Sex: Male
  Weight: 44.8 kg

DRUGS (1)
  1. CEFTRIAXONE [Suspect]
     Active Substance: CEFTRIAXONE
     Indication: Appendicitis
     Dosage: FREQUENCY : DAILY;?
     Route: 040
     Dates: start: 20221227, end: 20221227

REACTIONS (5)
  - Face oedema [None]
  - Anaphylactic reaction [None]
  - Angioedema [None]
  - Cross sensitivity reaction [None]
  - Urticaria [None]

NARRATIVE: CASE EVENT DATE: 20221227
